FAERS Safety Report 4816783-2 (Version None)
Quarter: 2005Q4

REPORT INFORMATION
  Report Type: 
  Country: None (occurrence: None)
  Receive Date: 20051031
  Receipt Date: 20051031
  Transmission Date: 20060501
  Serious: Yes (Hospitalization)
  Sender: FDA-Public Use
  Company Number: None

PATIENT
  Age: 78 Year
  Sex: Male
  Weight: 94.3482 kg

DRUGS (2)
  1. GASTROGRAFIN [Suspect]
     Indication: ABDOMEN SCAN
     Dosage: 20 ML     X 1   IV
     Route: 042
     Dates: start: 20051024, end: 20051024
  2. LISINOPRIL [Suspect]
     Dosage: 40 MG  DAILY  PO
     Route: 048
     Dates: start: 20021118, end: 20051024

REACTIONS (3)
  - BLOOD CREATININE INCREASED [None]
  - CHOLECYSTITIS ACUTE [None]
  - HYPOTENSION [None]
